FAERS Safety Report 8066424-9 (Version None)
Quarter: 2012Q1

REPORT INFORMATION
  Report Type: 
  Country: None (occurrence: None)
  Receive Date: 20120124
  Receipt Date: 20120124
  Transmission Date: 20120608
  Serious: Yes (Death)
  Sender: FDA-Public Use
  Company Number: None

PATIENT
  Age: 64 Year
  Sex: Male
  Weight: 80 kg

DRUGS (1)
  1. DABIGATRAN [Suspect]
     Indication: ATRIAL FIBRILLATION

REACTIONS (6)
  - SUBDURAL HAEMORRHAGE [None]
  - PRODUCT QUALITY ISSUE [None]
  - FALL [None]
  - HEAD INJURY [None]
  - DIALYSIS [None]
  - HAEMORRHAGE INTRACRANIAL [None]
